FAERS Safety Report 21011518 (Version 1)
Quarter: 2022Q2

REPORT INFORMATION
  Report Type: Spontaneous
  Country: US (occurrence: US)
  Receive Date: 20220627
  Receipt Date: 20220627
  Transmission Date: 20220720
  Serious: No
  Sender: FDA-Public Use
  Company Number: US-PRINSTON PHARMACEUTICAL INC.-2022PRN00162

PATIENT
  Sex: Female

DRUGS (1)
  1. POTASSIUM CHLORIDE [Suspect]
     Active Substance: POTASSIUM CHLORIDE

REACTIONS (6)
  - Reaction to excipient [Unknown]
  - Nausea [Unknown]
  - Vomiting [Unknown]
  - Flatulence [Unknown]
  - Abdominal pain [Unknown]
  - Diarrhoea [Unknown]
